FAERS Safety Report 6900223-3 (Version None)
Quarter: 2010Q3

REPORT INFORMATION
  Report Type: 
  Country: None (occurrence: None)
  Receive Date: 20100803
  Receipt Date: 20100729
  Transmission Date: 20110219
  Serious: Yes (Life-Threatening)
  Sender: FDA-Public Use
  Company Number: IT-ROCHE-710204

PATIENT
  Sex: Female

DRUGS (1)
  1. CLONAZEPAM [Suspect]
     Indication: AGITATION
     Dosage: FREQUENCY: DAILY
     Route: 048
     Dates: start: 20100525, end: 20100526

REACTIONS (2)
  - ACUTE RESPIRATORY FAILURE [None]
  - BRONCHOSPASM [None]
